FAERS Safety Report 7428001-X (Version None)
Quarter: 2011Q2

REPORT INFORMATION
  Report Type: 
  Country: None (occurrence: None)
  Receive Date: 20110412
  Receipt Date: 20110328
  Transmission Date: 20111010
  Serious: Yes (Other)
  Sender: FDA-Public Use
  Company Number: 030182

PATIENT
  Sex: Male
  Weight: 90.7194 kg

DRUGS (4)
  1. CIMZIA [Suspect]
     Indication: CROHN'S DISEASE
     Dosage: (RECEIVED 2 DOSES ONE MONTH APART SUBCUTANEOUS)
     Route: 058
     Dates: start: 20100809, end: 20100909
  2. METOPROLOL SUCCINATE [Concomitant]
  3. RESTASIS [Concomitant]
  4. OMEPRAZOLE [Concomitant]

REACTIONS (1)
  - DRUG HYPERSENSITIVITY [None]
